FAERS Safety Report 23783148 (Version 1)
Quarter: 2024Q2

REPORT INFORMATION
  Report Type: Spontaneous
  Country: US (occurrence: None)
  Receive Date: 20240424
  Receipt Date: 20240424
  Transmission Date: 20240716
  Serious: Yes (Hospitalization)
  Sender: FDA-Public Use
  Company Number: None

PATIENT
  Age: 54 Year
  Sex: Male

DRUGS (9)
  1. TECARTUS [Suspect]
     Active Substance: BREXUCABTAGENE AUTOLEUCEL
     Indication: Lymphoma
     Dosage: OTHER FREQUENCY : ONCE;68 ML ONCE INTRAVENOUS DRIP
     Route: 041
     Dates: start: 20231027
  2. ACYCLOVIR [Concomitant]
     Active Substance: ACYCLOVIR
  3. CEFEPIME [Concomitant]
     Active Substance: CEFEPIME HYDROCHLORIDE
  4. EMEND [Concomitant]
     Active Substance: APREPITANT
  5. FUROSEMIDE [Concomitant]
     Active Substance: FUROSEMIDE
  6. KEPPRA [Concomitant]
     Active Substance: LEVETIRACETAM
  7. ZOFRAN [Concomitant]
     Active Substance: ONDANSETRON HYDROCHLORIDE
  8. PROTONIX [Concomitant]
     Active Substance: PANTOPRAZOLE SODIUM
  9. ZOSYN [Concomitant]
     Active Substance: PIPERACILLIN SODIUM\TAZOBACTAM SODIUM

REACTIONS (4)
  - Cytokine release syndrome [None]
  - Seizure [None]
  - Stem cell transplant [None]
  - Immune effector cell-associated neurotoxicity syndrome [None]

NARRATIVE: CASE EVENT DATE: 20231101
